FAERS Safety Report 5973683-2 (Version None)
Quarter: 2008Q4

REPORT INFORMATION
  Report Type: 
  Country: None (occurrence: None)
  Receive Date: 20081201
  Receipt Date: 20081125
  Transmission Date: 20090506
  Serious: Yes (Death)
  Sender: FDA-Public Use
  Company Number: US-ROXANE LABORATORIES, INC.-2008-RO-00288RO

PATIENT
  Age: 17 Day
  Sex: Male

DRUGS (3)
  1. PSEUDOEPHEDRINE HCL [Suspect]
  2. DEXTROMETHORPHAN [Suspect]
  3. BROMPHENIRAMINE [Suspect]

REACTIONS (1)
  - PNEUMONIA [None]
